FAERS Safety Report 8507218-7 (Version None)
Quarter: 2012Q3

REPORT INFORMATION
  Report Type: 
  Country: None (occurrence: None)
  Receive Date: 20120712
  Receipt Date: 20120705
  Transmission Date: 20120928
  Serious: Yes (Hospitalization)
  Sender: FDA-Public Use
  Company Number: CA-SANOFI-AVENTIS-2012SA048212

PATIENT
  Age: 62 Year
  Sex: Female

DRUGS (10)
  1. RANITIDINE [Concomitant]
     Route: 048
  2. METOLAZONE [Concomitant]
     Dosage: FREQUENCY: 2 EVERY 2DAYS
     Route: 048
  3. ACETAMINOPHEN [Concomitant]
     Route: 048
  4. AMILORIDE HCL AND HYDROCHLOROTHIAZIDE [Concomitant]
     Route: 048
  5. HYDROCHLOROTHIAZIDE [Concomitant]
     Route: 048
  6. POTASSIUM CHLORIDE [Concomitant]
     Route: 048
  7. TAXOTERE [Suspect]
     Route: 042
  8. NYSTATIN [Concomitant]
     Route: 048
  9. CIPROFLOXACIN HCL [Concomitant]
     Route: 048
  10. FENTANYL [Concomitant]
     Dosage: 2 EVERY 1 WEEK

REACTIONS (4)
  - PLEURAL EFFUSION [None]
  - PNEUMONITIS [None]
  - PULMONARY OEDEMA [None]
  - ALVEOLITIS [None]
